FAERS Safety Report 23186224 (Version 3)
Quarter: 2024Q2

REPORT INFORMATION
  Report Type: Report from Study
  Country: US (occurrence: US)
  Receive Date: 20231115
  Receipt Date: 20240423
  Transmission Date: 20240716
  Serious: Yes (Hospitalization, Other)
  Sender: FDA-Public Use
  Company Number: US-002147023-NVSC2023US005798

PATIENT
  Age: 40 Year
  Sex: Male
  Weight: 124.72 kg

DRUGS (4)
  1. TREPROSTINIL [Suspect]
     Active Substance: TREPROSTINIL
     Dosage: 149 NG/KG/M I N, CONT
     Route: 065
     Dates: start: 20210604
  2. TREPROSTINIL [Suspect]
     Active Substance: TREPROSTINIL
     Dosage: 149 NG/KG/MIN, CONT
     Route: 058
     Dates: start: 20210604
  3. TREPROSTINIL [Suspect]
     Active Substance: TREPROSTINIL
     Indication: Pulmonary arterial hypertension
     Dosage: 149 NG/KG/MIN, CONT
     Route: 058
     Dates: start: 20210604
  4. TREPROSTINIL [Suspect]
     Active Substance: TREPROSTINIL
     Indication: Pulmonary arterial hypertension
     Dosage: 149 NG/KG/MIN, CONT
     Route: 058

REACTIONS (7)
  - Pulmonary artery aneurysm [Unknown]
  - COVID-19 [Unknown]
  - Dyspnoea [Not Recovered/Not Resolved]
  - Fatigue [Not Recovered/Not Resolved]
  - Infusion site pain [Unknown]
  - Dyspnoea [Recovered/Resolved]
  - Nausea [Recovered/Resolved]

NARRATIVE: CASE EVENT DATE: 20230501
